FAERS Safety Report 21728766 (Version 1)
Quarter: 2022Q4

REPORT INFORMATION
  Report Type: Spontaneous
  Country: US (occurrence: US)
  Receive Date: 20221214
  Receipt Date: 20221214
  Transmission Date: 20230113
  Serious: No
  Sender: FDA-Public Use
  Company Number: US-BAYER-2022P027798

PATIENT
  Sex: Female

DRUGS (9)
  1. BETASERON [Suspect]
     Active Substance: INTERFERON BETA-1B
     Indication: Multiple sclerosis
     Dosage: UNK
     Dates: start: 1996, end: 1996
  2. METOPROLOL [Concomitant]
     Active Substance: METOPROLOL
  3. PROZAC [Concomitant]
     Active Substance: FLUOXETINE HYDROCHLORIDE
  4. BACLOFEN [Concomitant]
     Active Substance: BACLOFEN
  5. ARIMIDEX [Concomitant]
     Active Substance: ANASTROZOLE
  6. XANAX [Concomitant]
     Active Substance: ALPRAZOLAM
  7. ASCORBIC ACID\ZINC [Concomitant]
     Active Substance: ASCORBIC ACID\ZINC
  8. BLACK COHOSH [ACTAEA RACEMOSA] [Concomitant]
  9. OXITRIPTAN [Concomitant]
     Active Substance: OXITRIPTAN

REACTIONS (1)
  - Drug ineffective [Unknown]

NARRATIVE: CASE EVENT DATE: 19960101
